FAERS Safety Report 7302373-9 (Version None)
Quarter: 2011Q1

REPORT INFORMATION
  Report Type: 
  Country: None (occurrence: None)
  Receive Date: 20110218
  Receipt Date: 20110217
  Transmission Date: 20110831
  Serious: Yes (Death, Hospitalization)
  Sender: FDA-Public Use
  Company Number: CZ-PFIZER INC-2008101490

PATIENT
  Age: 64 Year
  Sex: Female
  Weight: 75 kg

DRUGS (5)
  1. CINNARIZINE [Concomitant]
     Route: 048
  2. METOPROLOL SUCCINATE [Concomitant]
     Route: 048
  3. CINNABENE [Concomitant]
     Route: 048
  4. SUNITINIB MALATE [Suspect]
     Indication: RENAL CELL CARCINOMA
     Dosage: 50 MG, 1X/DAY
     Route: 048
     Dates: start: 20081003
  5. WARFARIN [Concomitant]
     Dosage: 5 MG, UNK
     Route: 048
     Dates: end: 20081103

REACTIONS (1)
  - DEATH [None]
